FAERS Safety Report 4624618-6 (Version None)
Quarter: 2005Q1

REPORT INFORMATION
  Report Type: 
  Country: None (occurrence: None)
  Receive Date: 20050107
  Receipt Date: 20041130
  Transmission Date: 20050727
  Serious: No
  Sender: FDA-Public Use
  Company Number: 235827K04USA

PATIENT
  Age: 46 Year
  Sex: Female

DRUGS (3)
  1. REBIF [Suspect]
     Indication: MULTIPLE SCLEROSIS
     Dosage: 44 MCG 3 IN 1 WEEKS SUBCUTANEOUS
     Route: 058
     Dates: start: 20030926
  2. LIPITOR [Concomitant]
  3. ATENOLOL [Concomitant]

REACTIONS (4)
  - BLADDER DISORDER [None]
  - GALLBLADDER ENLARGEMENT [None]
  - HEPATIC ENZYME INCREASED [None]
  - LIVER FUNCTION TEST ABNORMAL [None]
